FAERS Safety Report 20535591 (Version 1)
Quarter: 2022Q1

REPORT INFORMATION
  Report Type: Spontaneous
  Country: CN (occurrence: CN)
  Receive Date: 20220302
  Receipt Date: 20220302
  Transmission Date: 20220423
  Serious: Yes (Hospitalization)
  Sender: FDA-Public Use
  Company Number: CN-JNJFOC-20211162254

PATIENT
  Age: 54 Year
  Sex: Male
  Weight: 46 kg

DRUGS (5)
  1. SIRTURO [Suspect]
     Active Substance: BEDAQUILINE FUMARATE
     Indication: Pulmonary tuberculosis
     Route: 048
     Dates: start: 20200921, end: 20201001
  2. ISONIAZID [Suspect]
     Active Substance: ISONIAZID
     Indication: Pulmonary tuberculosis
     Route: 048
     Dates: start: 20200921, end: 20201001
  3. CLOFAZIMINE [Suspect]
     Active Substance: CLOFAZIMINE
     Indication: Pulmonary tuberculosis
     Route: 048
     Dates: start: 20200921, end: 20201001
  4. CYCLOSERINE [Suspect]
     Active Substance: CYCLOSERINE
     Indication: Pulmonary tuberculosis
     Route: 048
     Dates: start: 20200921, end: 20201001
  5. AMIKACIN SULFATE [Suspect]
     Active Substance: AMIKACIN SULFATE
     Indication: Pulmonary tuberculosis
     Dosage: WITH 0.9% SODIUM CHLORIDE INJECTION 100ML
     Route: 041
     Dates: start: 20200921, end: 20201001

REACTIONS (4)
  - Vomiting [Recovered/Resolved]
  - Tremor [Recovered/Resolved]
  - Hypoaesthesia [Recovered/Resolved]
  - Visual impairment [Recovering/Resolving]

NARRATIVE: CASE EVENT DATE: 20200930
